FAERS Safety Report 15152587 (Version 6)
Quarter: 2020Q2

REPORT INFORMATION
  Report Type: Report from Study
  Country: US (occurrence: US)
  Receive Date: 20180717
  Receipt Date: 20200427
  Transmission Date: 20200713
  Serious: Yes (Other)
  Sender: FDA-Public Use
  Company Number: US-ROCHE-2151863

PATIENT
  Age: 31 Year
  Sex: Female
  Weight: 52.21 kg

DRUGS (8)
  1. OCREVUS [Suspect]
     Active Substance: OCRELIZUMAB
     Dosage: SECOND HALF DOSE
     Route: 042
     Dates: start: 20180410
  2. OCREVUS [Suspect]
     Active Substance: OCRELIZUMAB
     Route: 042
     Dates: start: 202001
  3. SOLU-MEDROL [Concomitant]
     Active Substance: METHYLPREDNISOLONE SODIUM SUCCINATE
  4. OCREVUS [Suspect]
     Active Substance: OCRELIZUMAB
     Indication: RELAPSING-REMITTING MULTIPLE SCLEROSIS
     Dosage: FIRST HALF DOSE?ON 10/JAN/2018 AND 24/JAN/2018, SHE RECEIVED OCRELIZUMAB.
     Route: 042
     Dates: start: 20180108
  5. OCREVUS [Suspect]
     Active Substance: OCRELIZUMAB
     Dosage: FULL DOSE; ONGOING : YES?LAST TREATMENT: 11/APR/2019
     Route: 042
     Dates: start: 20181010
  6. AMPYRA [Suspect]
     Active Substance: DALFAMPRIDINE
     Indication: GAIT DISTURBANCE
     Dosage: INDICATION: DIFFICULTY WALKING RELATED TO MS
     Route: 048
     Dates: start: 201805, end: 20180605
  7. VERSED [Suspect]
     Active Substance: MIDAZOLAM HYDROCHLORIDE
     Indication: PRODUCT USED FOR UNKNOWN INDICATION
     Route: 065
     Dates: start: 20180601
  8. TRAMADOL. [Suspect]
     Active Substance: TRAMADOL
     Indication: PRODUCT USED FOR UNKNOWN INDICATION
     Route: 065
     Dates: start: 20180601

REACTIONS (38)
  - Asthenia [Recovering/Resolving]
  - Presyncope [Recovering/Resolving]
  - Burning sensation [Recovered/Resolved]
  - Pain [Recovered/Resolved]
  - Feeling abnormal [Not Recovered/Not Resolved]
  - Fatigue [Recovered/Resolved]
  - Lung disorder [Unknown]
  - Progressive relapsing multiple sclerosis [Unknown]
  - Nausea [Recovering/Resolving]
  - Urinary incontinence [Unknown]
  - Pneumonia [Unknown]
  - Confusional state [Recovering/Resolving]
  - Eructation [Recovering/Resolving]
  - Pruritus [Not Recovered/Not Resolved]
  - Rash [Recovered/Resolved]
  - Gait disturbance [Not Recovered/Not Resolved]
  - Melanocytic naevus [Unknown]
  - Pulmonary pain [Not Recovered/Not Resolved]
  - Crying [Recovering/Resolving]
  - Gait disturbance [Not Recovered/Not Resolved]
  - Fatigue [Not Recovered/Not Resolved]
  - Influenza like illness [Not Recovered/Not Resolved]
  - Burning sensation [Not Recovered/Not Resolved]
  - Chest pain [Recovered/Resolved]
  - Panic reaction [Recovering/Resolving]
  - Flatulence [Recovering/Resolving]
  - Vomiting [Recovered/Resolved]
  - Arthralgia [Not Recovered/Not Resolved]
  - Pyrexia [Recovered/Resolved]
  - Headache [Recovering/Resolving]
  - Peroneal nerve palsy [Not Recovered/Not Resolved]
  - Chest pain [Not Recovered/Not Resolved]
  - Chest discomfort [Not Recovered/Not Resolved]
  - Dizziness [Recovering/Resolving]
  - Condition aggravated [Unknown]
  - Dizziness [Recovered/Resolved]
  - Bedridden [Not Recovered/Not Resolved]
  - Feeling abnormal [Unknown]

NARRATIVE: CASE EVENT DATE: 20180603
